FAERS Safety Report 11548321 (Version 1)
Quarter: 2015Q3

REPORT INFORMATION
  Report Type: Spontaneous
  Country: DE (occurrence: DE)
  Receive Date: 20150924
  Receipt Date: 20150924
  Transmission Date: 20151125
  Serious: Yes (Hospitalization, Other)
  Sender: FDA-Public Use
  Company Number: DE-BAXTER-2015BAX028466

PATIENT
  Age: 66 Year
  Sex: Male
  Weight: 65 kg

DRUGS (22)
  1. DOXORUBICIN [Suspect]
     Active Substance: DOXORUBICIN
     Dosage: THIRD CYCLE CHOP-14 THERAPY (85 MG)
     Route: 042
     Dates: start: 20150318, end: 20150318
  2. DOXORUBICIN [Suspect]
     Active Substance: DOXORUBICIN
     Dosage: SECOND CYCLE CHOP-14 THERAPY
     Route: 065
     Dates: start: 20150303
  3. ENDOXAN 1G [Suspect]
     Active Substance: CYCLOPHOSPHAMIDE
     Dosage: SECOND CYCLE CHOP-14 THERAPY
     Route: 065
     Dates: start: 20150303
  4. RITUXIMAB [Suspect]
     Active Substance: RITUXIMAB
     Dosage: THIRD CYCLE (635 MG)
     Route: 042
     Dates: start: 20150317, end: 20150317
  5. IMERON 300 [Concomitant]
     Indication: COMPUTERISED TOMOGRAM THORAX
     Dosage: MECHANICAL INJECTION
     Route: 065
     Dates: start: 20141216
  6. COTRIMOXAZOL [Concomitant]
     Active Substance: SULFAMETHOXAZOLE\TRIMETHOPRIM
     Indication: ANTIFUNGAL PROPHYLAXIS
     Dosage: STOPPED BEFORE 16APR2015
     Route: 065
  7. PROPOFOL. [Concomitant]
     Active Substance: PROPOFOL
     Indication: PRODUCT USED FOR UNKNOWN INDICATION
     Dosage: STARTED BEFORE COLOSCOPY
     Route: 042
  8. ENDOXAN 1G [Suspect]
     Active Substance: CYCLOPHOSPHAMIDE
     Dosage: THIRD CYCLE CHOP-14 THERAPY (1270 MG)
     Route: 042
     Dates: start: 20150318, end: 20150318
  9. VINCRISTIN [Suspect]
     Active Substance: VINCRISTINE
     Indication: CHEMOTHERAPY
     Dosage: 1 CYCLE CHOP-14 THERAPY
     Route: 065
     Dates: start: 20150217
  10. VINCRISTIN [Suspect]
     Active Substance: VINCRISTINE
     Dosage: SECOND CYCLE CHOP-14 THERAPY
     Route: 065
     Dates: start: 20150303
  11. VINCRISTIN [Suspect]
     Active Substance: VINCRISTINE
     Dosage: THIRD CYCLE CHOP-14 THERAPY (2 MG)
     Route: 042
     Dates: start: 20150318, end: 20150318
  12. DOXORUBICIN [Suspect]
     Active Substance: DOXORUBICIN
     Indication: CHEMOTHERAPY
     Dosage: 1 CYCLE CHOP-14 THERAPY
     Route: 065
     Dates: start: 20150217
  13. RITUXIMAB [Suspect]
     Active Substance: RITUXIMAB
     Dosage: 1 CYCLE
     Route: 065
     Dates: start: 20150216
  14. IMERON 300 [Concomitant]
     Indication: COMPUTERISED TOMOGRAM ABDOMEN
     Dosage: MECHANICAL INJECTION
     Route: 065
     Dates: start: 20150409
  15. PERITRAST SOLUTION [Concomitant]
     Indication: COMPUTERISED TOMOGRAM ABDOMEN
     Route: 048
     Dates: start: 20141216
  16. ENDOXAN 1G [Suspect]
     Active Substance: CYCLOPHOSPHAMIDE
     Indication: CHEMOTHERAPY
     Dosage: 6 CYCLES
     Route: 065
     Dates: start: 201501
  17. RITUXIMAB [Suspect]
     Active Substance: RITUXIMAB
     Indication: CHEMOTHERAPY
     Dosage: 2 CYCLES [AFTER RCHOP THERAPY]
     Route: 065
  18. PERITRAST SOLUTION [Concomitant]
     Indication: COMPUTERISED TOMOGRAM THORAX
  19. ENDOXAN 1G [Suspect]
     Active Substance: CYCLOPHOSPHAMIDE
     Dosage: 1 CYCLE CHOP-14 THERAPY
     Route: 065
     Dates: start: 20150217
  20. PREDNISON [Suspect]
     Active Substance: PREDNISONE
     Indication: CHEMOTHERAPY
     Route: 048
     Dates: start: 20150318, end: 20150322
  21. RITUXIMAB [Suspect]
     Active Substance: RITUXIMAB
     Dosage: SECOND CYCLE
     Route: 065
     Dates: start: 20150302
  22. DORMICUM [Concomitant]
     Active Substance: MIDAZOLAM\MIDAZOLAM HYDROCHLORIDE
     Indication: PRODUCT USED FOR UNKNOWN INDICATION
     Dosage: BEFORE COLOSCOPY
     Route: 042

REACTIONS (6)
  - Hiatus hernia [Unknown]
  - Drug-induced liver injury [Not Recovered/Not Resolved]
  - Alopecia [Unknown]
  - Hepatitis C [Unknown]
  - Reactive gastropathy [Unknown]
  - Metastases to bone marrow [Unknown]

NARRATIVE: CASE EVENT DATE: 20150213
